FAERS Safety Report 7126311-7 (Version None)
Quarter: 2010Q4

REPORT INFORMATION
  Report Type: 
  Country: None (occurrence: None)
  Receive Date: 20101129
  Receipt Date: 20100121
  Transmission Date: 20110411
  Serious: No
  Sender: FDA-Public Use
  Company Number: A0840731A

PATIENT

DRUGS (1)
  1. DIGOXIN [Suspect]
     Route: 042
     Dates: start: 20100121

REACTIONS (1)
  - DRUG ADMINISTRATION ERROR [None]
